FAERS Safety Report 14272421 (Version 1)
Quarter: 2017Q4

REPORT INFORMATION
  Report Type: Spontaneous
  Country: US (occurrence: US)
  Receive Date: 20171211
  Receipt Date: 20171211
  Transmission Date: 20180321
  Serious: No
  Sender: FDA-Public Use
  Company Number: None

PATIENT
  Age: 57 Year
  Sex: Female
  Weight: 78.75 kg

DRUGS (5)
  1. PRO-15 PROBIOTIC [Concomitant]
  2. DYSPORT [Suspect]
     Active Substance: ABOBOTULINUMTOXINA
     Indication: SKIN COSMETIC PROCEDURE
     Dosage: INTRAMUSCULAR 33 UNITS?
     Route: 030
     Dates: start: 20171109, end: 20171109
  3. VITAMIN C [Concomitant]
     Active Substance: ASCORBIC ACID
  4. MULTIVITAMIN [Concomitant]
     Active Substance: VITAMINS
  5. FINACEA [Concomitant]
     Active Substance: AZELAIC ACID

REACTIONS (31)
  - Depression [None]
  - Abdominal pain upper [None]
  - Tremor [None]
  - Oropharyngeal pain [None]
  - Dyspnoea [None]
  - Dysphagia [None]
  - Emotional distress [None]
  - Suicidal ideation [None]
  - Back pain [None]
  - Musculoskeletal stiffness [None]
  - Vision blurred [None]
  - Swelling face [None]
  - Erythema [None]
  - Palpitations [None]
  - Thinking abnormal [None]
  - Dry eye [None]
  - Feeling hot [None]
  - Rash generalised [None]
  - Dyspepsia [None]
  - Abdominal distension [None]
  - Influenza like illness [None]
  - Functional gastrointestinal disorder [None]
  - Pharyngeal paraesthesia [None]
  - Flatulence [None]
  - Burning sensation [None]
  - Renal failure [None]
  - Anxiety [None]
  - Neck pain [None]
  - Headache [None]
  - Thirst [None]
  - Chills [None]

NARRATIVE: CASE EVENT DATE: 20171109
